FAERS Safety Report 8387108-3 (Version None)
Quarter: 2012Q2

REPORT INFORMATION
  Report Type: 
  Country: None (occurrence: None)
  Receive Date: 20120525
  Receipt Date: 20120518
  Transmission Date: 20120825
  Serious: Yes (Hospitalization)
  Sender: FDA-Public Use
  Company Number: US-ACTELION-A-US2010-39198

PATIENT

DRUGS (3)
  1. VENTAVIS [Concomitant]
     Indication: PULMONARY ARTERIAL HYPERTENSION
     Dosage: UNK
     Route: 055
  2. REVATIO [Concomitant]
  3. TRACLEER [Suspect]
     Indication: PULMONARY ARTERIAL HYPERTENSION
     Dosage: 125 MG, BID
     Route: 048
     Dates: start: 20080701

REACTIONS (6)
  - DYSPNOEA [None]
  - PULMONARY ARTERIAL PRESSURE INCREASED [None]
  - FLUID RETENTION [None]
  - CHEST PAIN [None]
  - INFLUENZA LIKE ILLNESS [None]
  - CONDITION AGGRAVATED [None]
